FAERS Safety Report 8586173-8 (Version None)
Quarter: 2012Q3

REPORT INFORMATION
  Report Type: 
  Country: None (occurrence: None)
  Receive Date: 20120810
  Receipt Date: 20120807
  Transmission Date: 20120928
  Serious: Yes (Death)
  Sender: FDA-Public Use
  Company Number: PT-VIIV HEALTHCARE LIMITED-B0802526A

PATIENT
  Sex: Male
  Weight: 53 kg

DRUGS (8)
  1. CLOPIDOGREL [Concomitant]
     Dosage: 75MG PER DAY
     Dates: start: 20080415
  2. CARVEDILOL [Concomitant]
     Dosage: 12.5MG PER DAY
     Dates: start: 20080415
  3. RALTEGRAVIR [Concomitant]
     Indication: HIV INFECTION
     Dosage: 800MG PER DAY
     Route: 048
     Dates: start: 20100224, end: 20120625
  4. MARAVIROC [Suspect]
     Indication: HIV INFECTION
     Dosage: 300MG PER DAY
     Route: 048
     Dates: start: 20100224, end: 20120625
  5. ETRAVIRINE [Concomitant]
     Indication: HIV INFECTION
     Dosage: 400MG PER DAY
     Route: 048
     Dates: start: 20100224, end: 20120625
  6. PERINDOPRIL ERBUMINE [Concomitant]
     Dosage: 2.5MG PER DAY
     Dates: start: 20080415
  7. DARUNAVIR ETHANOLATE [Concomitant]
     Indication: HIV INFECTION
     Dosage: 1200MG PER DAY
     Route: 048
     Dates: start: 20100224, end: 20120625
  8. ROSUVASTATIN [Concomitant]
     Dosage: 10MG PER DAY
     Dates: start: 20080415

REACTIONS (2)
  - ISCHAEMIC CARDIOMYOPATHY [None]
  - ACUTE MYOCARDIAL INFARCTION [None]
